FAERS Safety Report 7790391-6 (Version None)
Quarter: 2011Q3

REPORT INFORMATION
  Report Type: 
  Country: None (occurrence: None)
  Receive Date: 20110930
  Receipt Date: 20110923
  Transmission Date: 20111222
  Serious: Yes (Hospitalization)
  Sender: FDA-Public Use
  Company Number: DE-UCBSA-025599

PATIENT
  Sex: Male
  Weight: 73 kg

DRUGS (1)
  1. CERTOLIZUMAB PEGOL [Suspect]
     Indication: RHEUMATOID ARTHRITIS
     Dosage: N0 OF DOSES RECEIVED :10
     Route: 058
     Dates: start: 20100727, end: 20101101

REACTIONS (4)
  - GRAND MAL CONVULSION [None]
  - FALL [None]
  - HAEMORRHAGE INTRACRANIAL [None]
  - SKULL FRACTURE [None]
